FAERS Safety Report 14967796 (Version 2)
Quarter: 2018Q2

REPORT INFORMATION
  Report Type: Spontaneous
  Country: US (occurrence: US)
  Receive Date: 20180604
  Receipt Date: 20180621
  Transmission Date: 20180711
  Serious: No
  Sender: FDA-Public Use
  Company Number: US-PFIZER INC-2018224890

PATIENT
  Age: 63 Year
  Sex: Female
  Weight: 68.4 kg

DRUGS (5)
  1. ADVIL PM [Suspect]
     Active Substance: DIPHENHYDRAMINE CITRATE\IBUPROFEN
     Indication: SLEEP DISORDER
     Dosage: 1 CAPSULE, ONCE DAILY (AT NIGHT)
     Route: 048
  2. ADVIL PM [Suspect]
     Active Substance: DIPHENHYDRAMINE CITRATE\IBUPROFEN
     Indication: BACK PAIN
     Dosage: 1-2 AT NIGHT
     Dates: start: 20180504, end: 2018
  3. AMLODIPINE BESYLATE. [Concomitant]
     Active Substance: AMLODIPINE BESYLATE
     Dosage: 5 MG, UNK, [1 TABLET  ]
  4. METOPROLOL SUCCINATE. [Concomitant]
     Active Substance: METOPROLOL SUCCINATE
     Dosage: 50 MG, UNK, [1 TABLET ]
  5. HYDROCHLOROTHIAZIDE. [Concomitant]
     Active Substance: HYDROCHLOROTHIAZIDE
     Dosage: 25 MG, UNK, [1 TABLET]

REACTIONS (2)
  - Drug ineffective [Unknown]
  - Bursitis [Unknown]

NARRATIVE: CASE EVENT DATE: 2017
